FAERS Safety Report 11599373 (Version 1)
Quarter: 2015Q3

REPORT INFORMATION
  Report Type: Spontaneous
  Country: US (occurrence: US)
  Receive Date: 20150916
  Receipt Date: 20150916
  Transmission Date: 20151125
  Serious: No
  Sender: FDA-Public Use
  Company Number: US-ELI_LILLY_AND_COMPANY-US200711007050

PATIENT
  Sex: Female

DRUGS (12)
  1. ACETYLCARNITINE [Concomitant]
     Active Substance: ACETYLCARNITINE
  2. FORTEO [Suspect]
     Active Substance: TERIPARATIDE
     Indication: OSTEOPOROSIS
     Dates: start: 20071015
  3. MAGNESIUM [Concomitant]
     Active Substance: MAGNESIUM
  4. CALTRATE +D [Concomitant]
  5. SIMVASTATIN. [Concomitant]
     Active Substance: SIMVASTATIN
  6. THIAMIN [Concomitant]
     Active Substance: THIAMINE
  7. CRESTOR [Concomitant]
     Active Substance: ROSUVASTATIN CALCIUM
  8. MULTIVITAMIN [Concomitant]
     Active Substance: VITAMINS
  9. ATENOLOL. [Concomitant]
     Active Substance: ATENOLOL
  10. CELEBREX [Concomitant]
     Active Substance: CELECOXIB
  11. REQUIP [Concomitant]
     Active Substance: ROPINIROLE HYDROCHLORIDE
  12. VITAMIN B12 [Concomitant]
     Active Substance: CYANOCOBALAMIN

REACTIONS (2)
  - Alopecia [Not Recovered/Not Resolved]
  - Hair texture abnormal [Not Recovered/Not Resolved]

NARRATIVE: CASE EVENT DATE: 200710
